FAERS Safety Report 13476040 (Version 2)
Quarter: 2017Q3

REPORT INFORMATION
  Report Type: Spontaneous
  Country: US (occurrence: US)
  Receive Date: 20170424
  Receipt Date: 20170728
  Transmission Date: 20171127
  Serious: No
  Sender: FDA-Public Use
  Company Number: US-AMGEN-USASP2017015435

PATIENT
  Age: 74 Year
  Sex: Female

DRUGS (17)
  1. QVAR [Concomitant]
     Active Substance: BECLOMETHASONE DIPROPIONATE
     Dosage: 80 MCG, UNK
  2. EFFIENT [Concomitant]
     Active Substance: PRASUGREL HYDROCHLORIDE
     Dosage: 10 MG, UNK
     Route: 048
  3. LOSARTAN POTASICO [Concomitant]
     Active Substance: LOSARTAN
     Dosage: 25 MG, UNK
     Route: 048
  4. MONTELUKAST [Concomitant]
     Active Substance: MONTELUKAST SODIUM
     Dosage: 10 MG, UNK
     Route: 048
  5. PREDNISONE. [Concomitant]
     Active Substance: PREDNISONE
     Dosage: 20 MG, UNK
     Route: 048
  6. PROAIR HFA [Concomitant]
     Active Substance: ALBUTEROL SULFATE
  7. RANEXA [Concomitant]
     Active Substance: RANOLAZINE
     Dosage: 500 MG, UNK
     Route: 048
  8. ALPRAZOLAM. [Concomitant]
     Active Substance: ALPRAZOLAM
     Dosage: 0.25 MG, UNK
     Route: 048
  9. BREO ELLIPTA [Concomitant]
     Active Substance: FLUTICASONE FUROATE\VILANTEROL TRIFENATATE
     Dosage: 200-25 UNK, UNK
  10. ISOSORB DINIT [Concomitant]
     Dosage: 30 MG, UNK
     Route: 048
  11. OMEGA 3 [Concomitant]
     Active Substance: OMEGA-3 FATTY ACIDS
     Dosage: 1 G, UNK
     Route: 048
  12. ESCITALOPRAM [Concomitant]
     Active Substance: ESCITALOPRAM OXALATE
     Dosage: 20 MG, UNK
     Route: 048
  13. REPATHA [Suspect]
     Active Substance: EVOLOCUMAB
     Indication: ACUTE MYOCARDIAL INFARCTION
     Dosage: 140 MG/ML, Q2WK
     Route: 058
     Dates: start: 20160514
  14. COREG CR [Concomitant]
     Active Substance: CARVEDILOL PHOSPHATE
     Dosage: 40 MG, UNK
     Route: 048
  15. NITROSTAT [Concomitant]
     Active Substance: NITROGLYCERIN
     Dosage: 0.4 MG, UNK
     Route: 060
  16. AZITHROMYCIN ANHYDROUS. [Concomitant]
     Active Substance: AZITHROMYCIN ANHYDROUS
     Dosage: 250 MG, UNK
     Route: 048
  17. OXCARBAZEPIN [Concomitant]
     Active Substance: OXCARBAZEPINE
     Dosage: 300 MG, UNK
     Route: 048

REACTIONS (1)
  - Dysgeusia [Not Recovered/Not Resolved]

NARRATIVE: CASE EVENT DATE: 20160514
